FAERS Safety Report 7482393-4 (Version None)
Quarter: 2011Q2

REPORT INFORMATION
  Report Type: 
  Country: None (occurrence: None)
  Receive Date: 20110516
  Receipt Date: 20110506
  Transmission Date: 20111010
  Serious: Yes (Other)
  Sender: FDA-Public Use
  Company Number: US-ASTRAZENECA-2011SE26922

PATIENT
  Age: 79 Year
  Sex: Female

DRUGS (4)
  1. NORVASC [Suspect]
  2. ACCUPRIL [Suspect]
  3. LIPITOR [Suspect]
  4. TOPROL-XL [Suspect]
     Route: 048

REACTIONS (6)
  - BRONCHOPNEUMONIA [None]
  - FALL [None]
  - NAUSEA [None]
  - VOMITING [None]
  - DIARRHOEA [None]
  - DEHYDRATION [None]
